FAERS Safety Report 23890722 (Version 3)
Quarter: 2025Q3

REPORT INFORMATION
  Report Type: Spontaneous
  Country: EU (occurrence: EU)
  Receive Date: 20240523
  Receipt Date: 20250722
  Transmission Date: 20251020
  Serious: Yes (Other)
  Sender: MYLAN
  Company Number: None

PATIENT
  Age: 63 Year
  Sex: Female
  Weight: 60 kg

DRUGS (16)
  1. DOXYCYCLINE [Suspect]
     Active Substance: DOXYCYCLINE
     Indication: Drug toxicity prophylaxis
     Dosage: 200 MILLIGRAM, QD
     Dates: start: 20240410, end: 202411
  2. DOXYCYCLINE [Suspect]
     Active Substance: DOXYCYCLINE
     Dosage: 200 MILLIGRAM, QD
     Route: 048
     Dates: start: 20240410, end: 202411
  3. DOXYCYCLINE [Suspect]
     Active Substance: DOXYCYCLINE
     Dosage: 200 MILLIGRAM, QD
     Route: 048
     Dates: start: 20240410, end: 202411
  4. DOXYCYCLINE [Suspect]
     Active Substance: DOXYCYCLINE
     Dosage: 200 MILLIGRAM, QD
     Dates: start: 20240410, end: 202411
  5. KRAZATI [Suspect]
     Active Substance: ADAGRASIB
     Indication: Colorectal cancer metastatic
     Dosage: 1200 MILLIGRAM, QD
     Route: 048
     Dates: start: 20231127, end: 20240326
  6. KRAZATI [Suspect]
     Active Substance: ADAGRASIB
     Dosage: 1200 MILLIGRAM, QD
     Dates: start: 20231127, end: 20240326
  7. KRAZATI [Suspect]
     Active Substance: ADAGRASIB
     Dosage: 1200 MILLIGRAM, QD
     Dates: start: 20231127, end: 20240326
  8. KRAZATI [Suspect]
     Active Substance: ADAGRASIB
     Dosage: 1200 MILLIGRAM, QD
     Route: 048
     Dates: start: 20231127, end: 20240326
  9. KRAZATI [Suspect]
     Active Substance: ADAGRASIB
     Dosage: 800 MILLIGRAM, QD
     Route: 048
     Dates: start: 20240327, end: 202411
  10. KRAZATI [Suspect]
     Active Substance: ADAGRASIB
     Dosage: 800 MILLIGRAM, QD
     Dates: start: 20240327, end: 202411
  11. KRAZATI [Suspect]
     Active Substance: ADAGRASIB
     Dosage: 800 MILLIGRAM, QD
     Dates: start: 20240327, end: 202411
  12. KRAZATI [Suspect]
     Active Substance: ADAGRASIB
     Dosage: 800 MILLIGRAM, QD
     Route: 048
     Dates: start: 20240327, end: 202411
  13. ERBITUX [Concomitant]
     Active Substance: CETUXIMAB
  14. ERBITUX [Concomitant]
     Active Substance: CETUXIMAB
     Route: 065
  15. ERBITUX [Concomitant]
     Active Substance: CETUXIMAB
     Route: 065
  16. ERBITUX [Concomitant]
     Active Substance: CETUXIMAB

REACTIONS (1)
  - Cholestasis [Not Recovered/Not Resolved]

NARRATIVE: CASE EVENT DATE: 20240422
